FAERS Safety Report 18915802 (Version 5)
Quarter: 2021Q4

REPORT INFORMATION
  Report Type: Report from Study
  Country: US (occurrence: US)
  Receive Date: 20210219
  Receipt Date: 20211113
  Transmission Date: 20220303
  Serious: No
  Sender: FDA-Public Use
  Company Number: NVSC2021US030547

PATIENT
  Sex: Male

DRUGS (2)
  1. ADAKVEO [Suspect]
     Active Substance: CRIZANLIZUMAB-TMCA
     Indication: Product used for unknown indication
     Dosage: 10 MG, QMO
     Route: 042
     Dates: end: 20201218
  2. ADAKVEO [Suspect]
     Active Substance: CRIZANLIZUMAB-TMCA
     Dosage: UNK,QMO
     Route: 042

REACTIONS (2)
  - Headache [Unknown]
  - Malaise [Recovered/Resolved]
